FAERS Safety Report 6326955-6 (Version None)
Quarter: 2009Q3

REPORT INFORMATION
  Report Type: 
  Country: None (occurrence: None)
  Receive Date: 20090825
  Receipt Date: 20090817
  Transmission Date: 20100115
  Serious: Yes (Other)
  Sender: FDA-Public Use
  Company Number: PHHY2009BR35064

PATIENT
  Age: 32 Year
  Sex: Female

DRUGS (1)
  1. ELIDEL [Suspect]
     Indication: SKIN EXFOLIATION
     Dosage: 2 TIMES A DAY (IN THE MORNING AND NIGHT)
     Route: 061
     Dates: start: 20090809

REACTIONS (7)
  - APPLICATION SITE ERYTHEMA [None]
  - APPLICATION SITE IRRITATION [None]
  - APPLICATION SITE SWELLING [None]
  - BURNING SENSATION [None]
  - DRUG TOXICITY [None]
  - NECK MASS [None]
  - SKIN WARM [None]
